FAERS Safety Report 6867876-X (Version None)
Quarter: 2010Q3

REPORT INFORMATION
  Report Type: 
  Country: None (occurrence: None)
  Receive Date: 20100722
  Receipt Date: 20080503
  Transmission Date: 20110219
  Serious: Yes (Other)
  Sender: FDA-Public Use
  Company Number: US-PFIZER INC-2008039243

PATIENT
  Sex: Female
  Weight: 122.5 kg

DRUGS (5)
  1. CHANTIX [Suspect]
     Indication: SMOKING CESSATION THERAPY
     Dates: start: 20080401
  2. GLIPIZIDE [Concomitant]
  3. METFORMIN [Concomitant]
  4. MIRAPEX [Concomitant]
  5. VALSARTAN [Concomitant]

REACTIONS (1)
  - EPISTAXIS [None]
